FAERS Safety Report 14691343 (Version 1)
Quarter: 2018Q1

REPORT INFORMATION
  Report Type: Spontaneous
  Country: US (occurrence: US)
  Receive Date: 20180327
  Receipt Date: 20180327
  Transmission Date: 20180509
  Serious: No
  Sender: FDA-Public Use
  Company Number: None

PATIENT
  Age: 38 Year
  Sex: Female

DRUGS (11)
  1. URSODIOL. [Concomitant]
     Active Substance: URSODIOL
  2. OXYCODONE [Concomitant]
     Active Substance: OXYCODONE
  3. TRIAMCINOLON [Concomitant]
  4. PHENAZOPYRID [Concomitant]
  5. UREA. [Concomitant]
     Active Substance: UREA
  6. OCALIVA [Suspect]
     Active Substance: OBETICHOLIC ACID
     Indication: PRIMARY BILIARY CHOLANGITIS
     Route: 048
     Dates: start: 20161107
  7. LISINOPRIL. [Concomitant]
     Active Substance: LISINOPRIL
  8. METFORMIN [Concomitant]
     Active Substance: METFORMIN HYDROCHLORIDE
  9. NIFEDIPINE. [Concomitant]
     Active Substance: NIFEDIPINE
  10. POLYETH GLYC [Concomitant]
     Active Substance: POLYETHYLENE GLYCOLS
  11. SIMVASTATIN. [Concomitant]
     Active Substance: SIMVASTATIN

REACTIONS (1)
  - Gallbladder disorder [None]

NARRATIVE: CASE EVENT DATE: 20180320
